FAERS Safety Report 4724276-6 (Version None)
Quarter: 2005Q3

REPORT INFORMATION
  Report Type: 
  Country: None (occurrence: None)
  Receive Date: 20050722
  Receipt Date: 20050711
  Transmission Date: 20060218
  Serious: Yes (Hospitalization)
  Sender: FDA-Public Use
  Company Number: SUS1-2005-00062

PATIENT
  Age: 59 Year
  Sex: Male

DRUGS (2)
  1. PENTASA [Suspect]
     Indication: COLITIS ULCERATIVE
     Dosage: 2000 MG, DAILY, ORAL
     Route: 048
     Dates: start: 20040801, end: 20041231
  2. PENTASA ^FERRING^ SUPPOSITORY [Concomitant]

REACTIONS (3)
  - HYPERSENSITIVITY [None]
  - PERICARDIAL EFFUSION [None]
  - PLEURAL EFFUSION [None]
